FAERS Safety Report 7434023-5 (Version None)
Quarter: 2011Q2

REPORT INFORMATION
  Report Type: 
  Country: None (occurrence: None)
  Receive Date: 20110425
  Receipt Date: 20110419
  Transmission Date: 20111010
  Serious: No
  Sender: FDA-Public Use
  Company Number: US-B.I. PHARMACEUTICALS,INC./RIDGEFIELD-2011-BP-03148BP

PATIENT
  Age: 62 Year
  Sex: Female

DRUGS (6)
  1. PRADAXA [Suspect]
     Indication: ATRIAL FIBRILLATION
     Dosage: 300 MG
     Route: 048
     Dates: start: 20110125
  2. LEVOTHYROXINE SODIUM [Concomitant]
     Indication: THYROID DISORDER
     Dosage: 0.125 MG
     Route: 048
     Dates: start: 19980101
  3. KADIAN [Concomitant]
     Indication: PAIN
     Dosage: 90 MG
     Route: 048
     Dates: start: 20040101
  4. METOPROLOL [Concomitant]
     Indication: HYPERTENSION
     Dosage: 150 MG
     Route: 048
     Dates: start: 20110101
  5. DUCOLACE [Concomitant]
  6. MS IR [Concomitant]
     Indication: PAIN
     Route: 048
     Dates: start: 20040101

REACTIONS (4)
  - HORDEOLUM [None]
  - EYE PRURITUS [None]
  - CONTUSION [None]
  - EYELID OEDEMA [None]
